FAERS Safety Report 8492370-2 (Version None)
Quarter: 2012Q3

REPORT INFORMATION
  Report Type: 
  Country: None (occurrence: None)
  Receive Date: 20120706
  Receipt Date: 20120626
  Transmission Date: 20120928
  Serious: Yes (Life-Threatening, Other)
  Sender: FDA-Public Use
  Company Number: JP-ROCHE-528155

PATIENT
  Sex: Female
  Weight: 65 kg

DRUGS (8)
  1. HERCEPTIN [Suspect]
     Indication: BREAST CANCER
     Route: 041
     Dates: start: 20070810, end: 20070810
  2. NOLVADEX [Concomitant]
     Route: 048
     Dates: start: 20070731, end: 20071002
  3. HERCEPTIN [Suspect]
     Dosage: DOSAGE WAS DECREASED
     Route: 041
     Dates: start: 20070817, end: 20090914
  4. FLUOROURACIL [Suspect]
     Indication: BREAST CANCER
     Route: 041
     Dates: start: 20070327, end: 20070710
  5. LEVOTHYROXINE SODIUM [Concomitant]
     Route: 048
  6. EPIRUBICIN HYDROCHLORIDE [Suspect]
     Indication: BREAST CANCER
     Route: 041
     Dates: start: 20070327, end: 20070710
  7. TRICHLORMETHIAZIDE [Concomitant]
     Route: 048
  8. CYCLOPHOSPHAMIDE [Suspect]
     Indication: BREAST CANCER
     Route: 041
     Dates: start: 20070327, end: 20070710

REACTIONS (3)
  - CARDIAC FAILURE [None]
  - CARDIOGENIC SHOCK [None]
  - CARDIAC ARREST [None]
